FAERS Safety Report 16443448 (Version 2)
Quarter: 2019Q2

REPORT INFORMATION
  Report Type: Spontaneous
  Country: US (occurrence: US)
  Receive Date: 20190618
  Receipt Date: 20190625
  Transmission Date: 20190711
  Serious: No
  Sender: FDA-Public Use
  Company Number: US-ELI_LILLY_AND_COMPANY-US201906006614

PATIENT
  Sex: Female

DRUGS (3)
  1. TRESIBA [Concomitant]
     Active Substance: INSULIN DEGLUDEC
     Indication: PRODUCT USED FOR UNKNOWN INDICATION
  2. TRULICITY [Suspect]
     Active Substance: DULAGLUTIDE
     Indication: TYPE 2 DIABETES MELLITUS
     Dosage: 0.75 MG, UNKNOWN
     Route: 065
     Dates: start: 20190606
  3. TRULICITY [Suspect]
     Active Substance: DULAGLUTIDE
     Dosage: 0.75 MG, UNKNOWN
     Route: 065
     Dates: start: 20190606

REACTIONS (11)
  - Asthenopia [Unknown]
  - Head discomfort [Unknown]
  - Dysstasia [Unknown]
  - Asthenia [Unknown]
  - Groin pain [Unknown]
  - Pain in extremity [Unknown]
  - Back disorder [Unknown]
  - Dizziness [Unknown]
  - Arthralgia [Unknown]
  - Blood pressure decreased [Unknown]
  - Ligament disorder [Unknown]

NARRATIVE: CASE EVENT DATE: 20190607
